FAERS Safety Report 5011517-3 (Version None)
Quarter: 2006Q2

REPORT INFORMATION
  Report Type: 
  Country: None (occurrence: None)
  Receive Date: 20060524
  Receipt Date: 20060510
  Transmission Date: 20061013
  Serious: Yes (Other)
  Sender: FDA-Public Use
  Company Number: US-2006-002514

PATIENT
  Age: 63 Year
  Sex: Female
  Weight: 55 kg

DRUGS (6)
  1. BETASERON [Suspect]
     Indication: SECONDARY PROGRESSIVE MULTIPLE SCLEROSIS
     Dosage: 8 M IU, EVERY 2D, SUBCUTANEOUS
     Route: 058
     Dates: start: 20000514
  2. ULTRAM [Concomitant]
  3. PREMARIN [Concomitant]
  4. DIAZEPAM [Concomitant]
  5. SYNTHROID [Concomitant]
  6. ALLERGY MEDICATION [Concomitant]

REACTIONS (8)
  - CATARACT [None]
  - DRY EYE [None]
  - EYE DISORDER [None]
  - INAPPROPRIATE SCHEDULE OF DRUG ADMINISTRATION [None]
  - PHOTOPSIA [None]
  - PROCEDURAL COMPLICATION [None]
  - UPPER RESPIRATORY TRACT INFECTION [None]
  - VISUAL ACUITY REDUCED [None]
